FAERS Safety Report 12626809 (Version 1)
Quarter: 2016Q3

REPORT INFORMATION
  Report Type: Report from Study
  Country: CA (occurrence: CA)
  Receive Date: 20160805
  Receipt Date: 20160805
  Transmission Date: 20161109
  Serious: Yes (Other)
  Sender: FDA-Public Use
  Company Number: CA-TEVA-682605USA

PATIENT
  Age: 14 Year
  Sex: Male

DRUGS (1)
  1. ZEBETA [Suspect]
     Active Substance: BISOPROLOL FUMARATE
     Indication: LONG QT SYNDROME
     Route: 065

REACTIONS (1)
  - Cardiac arrest [Recovered/Resolved]
